FAERS Safety Report 6345302-7 (Version None)
Quarter: 2009Q3

REPORT INFORMATION
  Report Type: 
  Country: None (occurrence: None)
  Receive Date: 20090909
  Receipt Date: 20090902
  Transmission Date: 20100115
  Serious: Yes (Death)
  Sender: FDA-Public Use
  Company Number: US-CELGENEUS-163-21880-09082147

PATIENT
  Sex: Female

DRUGS (1)
  1. REVLIMID [Suspect]
     Indication: MYELODYSPLASTIC SYNDROME
     Route: 048
     Dates: start: 20090817, end: 20090828

REACTIONS (5)
  - DEATH [None]
  - DECREASED APPETITE [None]
  - DIARRHOEA [None]
  - NASOPHARYNGITIS [None]
  - PRURITUS [None]
